FAERS Safety Report 17297896 (Version 1)
Quarter: 2020Q1

REPORT INFORMATION
  Report Type: Spontaneous
  Country: JP (occurrence: JP)
  Receive Date: 20200122
  Receipt Date: 20200122
  Transmission Date: 20200409
  Serious: Yes (Other)
  Sender: FDA-Public Use
  Company Number: JP-STRIDES ARCOLAB LIMITED-2020SP000562

PATIENT
  Age: 2 Month
  Sex: Female

DRUGS (1)
  1. VANCOMYCIN [Suspect]
     Active Substance: VANCOMYCIN
     Indication: DEVICE RELATED INFECTION
     Dosage: 100 MG/KG/DOSE (TOTAL 700MG/KG/COURSE)
     Route: 065

REACTIONS (5)
  - Accidental overdose [Unknown]
  - Nephropathy toxic [Unknown]
  - Acute kidney injury [Recovered/Resolved]
  - Incorrect dose administered [Unknown]
  - Renal impairment [Recovered/Resolved]
